FAERS Safety Report 7748136-1 (Version None)
Quarter: 2011Q3

REPORT INFORMATION
  Report Type: 
  Country: None (occurrence: None)
  Receive Date: 20110909
  Receipt Date: 20110831
  Transmission Date: 20111222
  Serious: Yes (Other)
  Sender: FDA-Public Use
  Company Number: ACO_26449_2011

PATIENT
  Age: 48 Year
  Sex: Female

DRUGS (1)
  1. AMPYRA [Suspect]
     Indication: GAIT DISTURBANCE
     Dosage: 10MG, Q 12HRS

REACTIONS (2)
  - RENAL MASS [None]
  - CYSTITIS [None]
